FAERS Safety Report 11344814 (Version 1)
Quarter: 2015Q3

REPORT INFORMATION
  Report Type: Spontaneous
  Country: CA (occurrence: CA)
  Receive Date: 20150806
  Receipt Date: 20150806
  Transmission Date: 20151125
  Serious: Yes (Other)
  Sender: FDA-Public Use
  Company Number: CA-TEVA-584098ACC

PATIENT
  Age: 65 Year
  Sex: Male

DRUGS (2)
  1. RATIO-TAMSULOSIN [Suspect]
     Active Substance: TAMSULOSIN
     Indication: BENIGN PROSTATIC HYPERPLASIA
     Dosage: .4 MILLIGRAM DAILY;
     Route: 065
  2. CIALIS [Concomitant]
     Active Substance: TADALAFIL
     Route: 065

REACTIONS (1)
  - Erectile dysfunction [Recovered/Resolved]
